FAERS Safety Report 7884688-9 (Version None)
Quarter: 2011Q4

REPORT INFORMATION
  Report Type: 
  Country: None (occurrence: None)
  Receive Date: 20111102
  Receipt Date: 20111027
  Transmission Date: 20120403
  Serious: Yes (Other)
  Sender: FDA-Public Use
  Company Number: GB-PFIZER INC-2011172810

PATIENT
  Age: 13 Year
  Sex: Male
  Weight: 40 kg

DRUGS (8)
  1. MYCOPHENOLATE MOFETIL [Concomitant]
     Dosage: 500 MG UNIT DOSE
     Route: 042
  2. TERBINAFINE [Concomitant]
     Dosage: 250 MG, 2X/DAY
     Route: 048
  3. METOCLOPRAMIDE [Concomitant]
  4. VFEND [Suspect]
     Indication: FUNGAL INFECTION
     Dosage: UNK
     Route: 042
     Dates: start: 20110124, end: 20110620
  5. VFEND [Suspect]
     Indication: BRAIN ABSCESS
  6. DOMPERIDONE [Concomitant]
  7. ADALAT [Concomitant]
  8. CYCLIZINE [Concomitant]

REACTIONS (3)
  - PAIN IN EXTREMITY [None]
  - BLOOD ALKALINE PHOSPHATASE INCREASED [None]
  - PERIOSTITIS [None]
